FAERS Safety Report 8612837-3 (Version None)
Quarter: 2012Q3

REPORT INFORMATION
  Report Type: 
  Country: None (occurrence: None)
  Receive Date: 20120822
  Receipt Date: 20110906
  Transmission Date: 20120928
  Serious: No
  Sender: FDA-Public Use
  Company Number: US-ASTRAZENECA-2011SE13137

PATIENT
  Age: 51 Year
  Sex: Female

DRUGS (6)
  1. ALBUTEROL [Concomitant]
     Dosage: QID PRN
  2. IPRATROPIUM BROMIDE AND ALBUTEROL COBINATION [Concomitant]
     Indication: CHRONIC OBSTRUCTIVE PULMONARY DISEASE
     Dosage: AS REQUIRED
  3. IPRATROPIUM BROMIDE AND ALBUTEROL COBINATION [Concomitant]
     Indication: ASTHMA
     Dosage: AS REQUIRED
  4. FLUTICASONE PROPIONATE/SALMETEROL [Concomitant]
  5. SYMBICORT [Suspect]
     Indication: ASTHMA
     Dosage: 160/4.5 TWO PUFFS BID
     Route: 055
     Dates: start: 20090923
  6. SYMBICORT [Suspect]
     Indication: CHRONIC OBSTRUCTIVE PULMONARY DISEASE
     Dosage: 160/4.5 TWO PUFFS BID
     Route: 055
     Dates: start: 20090923

REACTIONS (3)
  - INCORRECT DOSE ADMINISTERED BY DEVICE [None]
  - DYSPNOEA [None]
  - DRUG DOSE OMISSION [None]
